FAERS Safety Report 18484030 (Version 1)
Quarter: 2020Q4

REPORT INFORMATION
  Report Type: Spontaneous
  Country: GB (occurrence: GB)
  Receive Date: 20201110
  Receipt Date: 20201110
  Transmission Date: 20210114
  Serious: Yes (Life-Threatening, Other)
  Sender: FDA-Public Use
  Company Number: GB-AUROBINDO-AUR-APL-2020-055047

PATIENT
  Age: 25 Year
  Sex: Male
  Weight: 91 kg

DRUGS (1)
  1. CITALOPRAM [Suspect]
     Active Substance: CITALOPRAM HYDROBROMIDE
     Indication: DEPRESSION
     Dosage: 20 MILLIGRAM, ONCE A DAY
     Route: 048
     Dates: start: 20200703, end: 20200720

REACTIONS (6)
  - Agitation [Not Recovered/Not Resolved]
  - Paranoia [Unknown]
  - Feeling abnormal [Unknown]
  - Panic attack [Not Recovered/Not Resolved]
  - Restlessness [Unknown]
  - Suicidal ideation [Not Recovered/Not Resolved]

NARRATIVE: CASE EVENT DATE: 20200705
